FAERS Safety Report 5319342-0 (Version None)
Quarter: 2007Q2

REPORT INFORMATION
  Report Type: 
  Country: None (occurrence: None)
  Receive Date: 20070508
  Receipt Date: 20070426
  Transmission Date: 20071010
  Serious: Yes (Other)
  Sender: FDA-Public Use
  Company Number: US-PFIZER INC-2007008743

PATIENT
  Age: 21 Year
  Sex: Male
  Weight: 68 kg

DRUGS (18)
  1. VFEND [Suspect]
     Indication: BRONCHOPULMONARY ASPERGILLOSIS
     Dosage: DAILY DOSE:394MG-TEXT:6 MG/KG
     Route: 042
  2. VFEND [Suspect]
     Route: 042
  3. VFEND [Suspect]
     Dosage: DAILY DOSE:400MG-FREQ:Q12H: EVERY DAY
     Route: 042
  4. VFEND [Suspect]
     Dosage: DAILY DOSE:273MG
     Route: 042
  5. VFEND [Suspect]
     Indication: BRONCHOPULMONARY ASPERGILLOSIS
     Route: 048
     Dates: start: 20070101, end: 20070101
  6. CHEMOTHERAPY NOS [Concomitant]
  7. VANCOMYCIN [Concomitant]
  8. DIURETICS [Concomitant]
  9. MORPHINE [Concomitant]
  10. MICAFUNGIN [Concomitant]
  11. MEROPENEM [Concomitant]
  12. URSODIOL [Concomitant]
  13. PHYTONADIONE [Concomitant]
  14. AMIKACIN [Concomitant]
  15. AMBISOME [Concomitant]
  16. DAPTOMYCIN [Concomitant]
  17. FOSCARNET [Concomitant]
  18. TPN [Concomitant]

REACTIONS (3)
  - CONJUNCTIVAL HYPERAEMIA [None]
  - INTUBATION [None]
  - VISUAL DISTURBANCE [None]
